FAERS Safety Report 4532199-0 (Version None)
Quarter: 2004Q4

REPORT INFORMATION
  Report Type: 
  Country: None (occurrence: None)
  Receive Date: 20041217
  Receipt Date: 20041206
  Transmission Date: 20050328
  Serious: Yes (Hospitalization, Other)
  Sender: FDA-Public Use
  Company Number: 2003123385

PATIENT
  Age: 77 Year
  Sex: Male

DRUGS (11)
  1. LIPITOR [Suspect]
     Indication: HYPERLIPIDAEMIA
     Dosage: 5 MG (DAILY), ORAL
     Route: 048
     Dates: start: 20030410, end: 20030908
  2. PRAVASTATIN [Suspect]
     Indication: HYPERLIPIDAEMIA
     Dosage: 5 MG (PER DAY), ORAL
     Route: 048
     Dates: start: 20021227, end: 20030409
  3. FENOTEROL HYDROBROMIDE (FENOTEROL HYDROBROMIDE) [Concomitant]
  4. AMBROXOL HYDROCHLORIDE (AMBROXOL HYDROCHLORIDE) [Concomitant]
  5. LEVOFLOXACIN [Concomitant]
  6. EPRAZINONE HYDROCHLORIDE (EPRAZINONE HYDROCHLORIDE) [Concomitant]
  7. CELESTAMINE TAB [Concomitant]
  8. SUPLATAST TOSILATE (SUPLATAST TOSILATE) [Concomitant]
  9. SENNOSIDE A+B (SENNOSIDE A+B) [Concomitant]
  10. OXATOMIDE [Concomitant]
  11. PL GRAN. (CAFFEINE, SALICYLAMIDE, PARACETAMOL PROMETHAZINE METHYLENE D [Concomitant]

REACTIONS (25)
  - APLASTIC ANAEMIA [None]
  - ASTHMA [None]
  - BAND NEUTROPHIL COUNT INCREASED [None]
  - BLOOD ALKALINE PHOSPHATASE INCREASED [None]
  - BLOOD CALCIUM INCREASED [None]
  - BLOOD CHLORIDE DECREASED [None]
  - BLOOD CHOLESTEROL INCREASED [None]
  - BLOOD CREATINE PHOSPHOKINASE INCREASED [None]
  - BLOOD FIBRINOGEN INCREASED [None]
  - BLOOD LACTATE DEHYDROGENASE INCREASED [None]
  - BLOOD UREA INCREASED [None]
  - BRONCHIOLITIS [None]
  - CONDITION AGGRAVATED [None]
  - DRUG INEFFECTIVE [None]
  - HIGH DENSITY LIPOPROTEIN INCREASED [None]
  - INFECTION [None]
  - LEUKOCYTE ALKALINE PHOSPHATASE INCREASED [None]
  - LIPID METABOLISM DISORDER [None]
  - LOW DENSITY LIPOPROTEIN INCREASED [None]
  - LYMPHOCYTE COUNT INCREASED [None]
  - MALAISE [None]
  - MYALGIA [None]
  - PAIN [None]
  - PANCYTOPENIA [None]
  - PYREXIA [None]
